FAERS Safety Report 15699259 (Version 1)
Quarter: 2018Q4

REPORT INFORMATION
  Report Type: Report from Study
  Country: US (occurrence: US)
  Receive Date: 20181207
  Receipt Date: 20181207
  Transmission Date: 20190205
  Serious: Yes (Hospitalization)
  Sender: FDA-Public Use
  Company Number: US-ROCHE-2226559

PATIENT
  Sex: Female
  Weight: 36 kg

DRUGS (17)
  1. LEXAPRO [Concomitant]
     Active Substance: ESCITALOPRAM OXALATE
     Dosage: DAILY
     Route: 065
  2. NUTROPIN AQ [Suspect]
     Active Substance: SOMATROPIN
     Indication: CHRONIC KIDNEY DISEASE
     Route: 058
  3. MEPRON (UNITED STATES) [Concomitant]
     Dosage: 750 MG/5ML
     Route: 048
  4. ENVARSUS XR [Concomitant]
     Active Substance: TACROLIMUS
     Dosage: EVERY DAY?EXTENDED RELEASE
     Route: 048
  5. IMODIUM A-D [Concomitant]
     Active Substance: LOPERAMIDE HYDROCHLORIDE
     Route: 048
  6. SODIUM BICARBONATE. [Concomitant]
     Active Substance: SODIUM BICARBONATE
     Route: 048
  7. AMLODIPINE [Concomitant]
     Active Substance: AMLODIPINE BESYLATE
     Route: 048
  8. ROCALTROL [Concomitant]
     Active Substance: CALCITRIOL
     Dosage: EVERY OTHER DAY
     Route: 065
  9. CHOLECALCIFEROL [Concomitant]
     Active Substance: CHOLECALCIFEROL
     Dosage: 50000 UNITS EVERY OTHER WEEK
     Route: 065
  10. HYDROCORTISONE SODIUM SUCCINATE [Concomitant]
     Active Substance: HYDROCORTISONE SODIUM SUCCINATE
     Dosage: AS NEEDED
     Route: 042
  11. LABETALOL [Concomitant]
     Active Substance: LABETALOL\LABETALOL HYDROCHLORIDE
     Route: 065
  12. PRAVACHOL [Concomitant]
     Active Substance: PRAVASTATIN SODIUM
     Dosage: EVERY DAY
     Route: 048
  13. RAPAMUNE [Concomitant]
     Active Substance: SIROLIMUS
     Dosage: EVERY DAY
     Route: 048
  14. LISINOPRIL. [Concomitant]
     Active Substance: LISINOPRIL
     Dosage: EVERY DAY
     Route: 048
  15. DELTASONE [Concomitant]
     Active Substance: PREDNISONE
     Dosage: EVERY DAY
     Route: 048
  16. FERROUS SULFATE. [Concomitant]
     Active Substance: FERROUS SULFATE
     Dosage: BYMOUTH EVERY DAY
     Route: 048
  17. HUMALOG [Concomitant]
     Active Substance: INSULIN LISPRO
     Dosage: 50 UNITS PER DAY
     Route: 065

REACTIONS (5)
  - Thyroid disorder [Unknown]
  - Diarrhoea [Unknown]
  - Madarosis [Unknown]
  - Constipation [Unknown]
  - Abdominal pain [Unknown]
